FAERS Safety Report 14488246 (Version 2)
Quarter: 2019Q4

REPORT INFORMATION
  Report Type: Report from Study
  Country: FR (occurrence: FR)
  Receive Date: 20180205
  Receipt Date: 20191220
  Transmission Date: 20200122
  Serious: Yes (Hospitalization)
  Sender: FDA-Public Use
  Company Number: FR-MYLANLABS-2018M1007730

PATIENT
  Age: 73 Year
  Sex: Female
  Weight: 55 kg

DRUGS (5)
  1. 5-FU                               /00098801/ [Suspect]
     Active Substance: FLUOROURACIL
     Dosage: 560 MG, UNK
     Route: 040
     Dates: start: 20131107
  2. XELODA [Suspect]
     Active Substance: CAPECITABINE
     Indication: COLORECTAL CANCER METASTATIC
     Dosage: 1600 MG, UNK
     Route: 065
  3. OXALIPLATIN. [Suspect]
     Active Substance: OXALIPLATIN
     Indication: COLORECTAL CANCER METASTATIC
     Dosage: 119 MG, CYCLE
     Dates: start: 20131107
  4. 5-FU                               /00098801/ [Suspect]
     Active Substance: FLUOROURACIL
     Indication: COLORECTAL CANCER METASTATIC
     Dosage: 3360 MG, CYCLE
     Route: 041
     Dates: start: 20131107
  5. AVASTIN [Suspect]
     Active Substance: BEVACIZUMAB
     Indication: COLORECTAL CANCER METASTATIC
     Dosage: 337.5 MG, 15 CYCLE
     Dates: start: 20131107

REACTIONS (1)
  - Jaundice [Recovered/Resolved]

NARRATIVE: CASE EVENT DATE: 20140708
